FAERS Safety Report 8844296 (Version 1)
Quarter: 2012Q4

REPORT INFORMATION
  Report Type: 
  Country: AT (occurrence: AT)
  Receive Date: 20121017
  Receipt Date: 20121017
  Transmission Date: 20130627
  Serious: Yes (Life-Threatening, Hospitalization)
  Sender: FDA-Public Use
  Company Number: AT-JNJFOC-20121002370

PATIENT
  Age: 21 Year
  Sex: Male

DRUGS (4)
  1. CONCERTA [Suspect]
     Indication: PRODUCT USED FOR UNKNOWN INDICATION
     Route: 048
     Dates: start: 20120123, end: 20120126
  2. RISPERDAL CONSTA [Suspect]
     Indication: PRODUCT USED FOR UNKNOWN INDICATION
     Dosage: untill a week
     Route: 030
     Dates: start: 2010
  3. NOZINAN [Interacting]
     Indication: PRODUCT USED FOR UNKNOWN INDICATION
     Route: 065
     Dates: start: 201111, end: 20120201
  4. CIPRALEX [Interacting]
     Indication: PRODUCT USED FOR UNKNOWN INDICATION
     Route: 065
     Dates: start: 201111, end: 20120201

REACTIONS (4)
  - Suicidal ideation [Recovered/Resolved]
  - Paranoia [Unknown]
  - Panic attack [Recovered/Resolved]
  - Drug interaction [Unknown]
